FAERS Safety Report 18585333 (Version 1)
Quarter: 2020Q4

REPORT INFORMATION
  Report Type: Report from Study
  Country: US (occurrence: US)
  Receive Date: 20201207
  Receipt Date: 20201207
  Transmission Date: 20210114
  Serious: Yes (Hospitalization, Other)
  Sender: FDA-Public Use
  Company Number: US-GILEAD-2020-0507298

PATIENT
  Age: 38 Year
  Sex: Female

DRUGS (4)
  1. ETHAMBUTOL [ETHAMBUTOL DIHYDROCHLORIDE] [Concomitant]
     Active Substance: ETHAMBUTOL HYDROCHLORIDE
  2. AZTREONAM LYSINE [Suspect]
     Active Substance: AZTREONAM LYSINE
     Indication: CYSTIC FIBROSIS
     Dosage: 75 MG, TID, 28 DAYS ON 28 DAYS OFF
     Route: 065
     Dates: start: 20161018
  3. TRIKAFTA [Suspect]
     Active Substance: ELEXACAFTOR\IVACAFTOR\TEZACAFTOR
     Indication: MYCOBACTERIUM AVIUM COMPLEX INFECTION
     Dosage: UNK
     Route: 065
     Dates: end: 20200929
  4. TRIKAFTA [Suspect]
     Active Substance: ELEXACAFTOR\IVACAFTOR\TEZACAFTOR
     Dosage: UNK
     Route: 065
     Dates: start: 20201015

REACTIONS (8)
  - Tinnitus [Not Recovered/Not Resolved]
  - Paraesthesia [Unknown]
  - Mycobacterium avium complex infection [Recovered/Resolved]
  - Vein disorder [Unknown]
  - Dizziness [Unknown]
  - Neuropathy peripheral [Not Recovered/Not Resolved]
  - Peripheral coldness [Unknown]
  - Skin discolouration [Unknown]

NARRATIVE: CASE EVENT DATE: 201911
